FAERS Safety Report 8720606 (Version 2)
Quarter: 2015Q2

REPORT INFORMATION
  Report Type: Report from Study
  Country: US (occurrence: US)
  Receive Date: 20120910
  Receipt Date: 20150625
  Transmission Date: 20150821
  Serious: Yes (Hospitalization)
  Sender: FDA-Public Use
  Company Number: US-ROCHE-1099260

PATIENT
  Sex: Male

DRUGS (7)
  1. NITROGLYCERIN. [Concomitant]
     Active Substance: NITROGLYCERIN
     Route: 060
  2. ACTIVASE [Suspect]
     Active Substance: ALTEPLASE
     Indication: ACUTE MYOCARDIAL INFARCTION
     Route: 040
  3. ACTIVASE [Suspect]
     Active Substance: ALTEPLASE
     Route: 042
  4. LIDOCAINE. [Concomitant]
     Active Substance: LIDOCAINE
     Route: 041
  5. ACTIVASE [Suspect]
     Active Substance: ALTEPLASE
     Dosage: 90 MG/MIN?IV PIGGI BACK
     Route: 042
  6. TAGAMET [Concomitant]
     Active Substance: CIMETIDINE
     Route: 042
  7. PHENERGAN [Concomitant]
     Active Substance: PROMETHAZINE HYDROCHLORIDE
     Route: 042

REACTIONS (6)
  - Bradycardia [Unknown]
  - Sinus tachycardia [Unknown]
  - Pallor [Unknown]
  - Supraventricular extrasystoles [Unknown]
  - Nausea [Unknown]
  - Electrocardiogram T wave peaked [Unknown]
